FAERS Safety Report 25315012 (Version 1)
Quarter: 2025Q2

REPORT INFORMATION
  Report Type: Spontaneous
  Country: US (occurrence: US)
  Receive Date: 20250514
  Receipt Date: 20250514
  Transmission Date: 20250717
  Serious: No
  Sender: SANOFI AVENTIS
  Company Number: US-SA-2025SA136204

PATIENT
  Age: 71 Year
  Sex: Male

DRUGS (2)
  1. DUPIXENT [Suspect]
     Active Substance: DUPILUMAB
     Indication: Dermatitis allergic
     Dosage: 300MG
     Route: 058
     Dates: start: 202401
  2. BIMZELX [Concomitant]
     Active Substance: BIMEKIZUMAB-BKZX

REACTIONS (5)
  - Rash erythematous [Unknown]
  - Pruritus [Unknown]
  - Skin burning sensation [Unknown]
  - Dermatitis allergic [Unknown]
  - Rebound effect [Unknown]

NARRATIVE: CASE EVENT DATE: 20250401
